FAERS Safety Report 7432715-5 (Version None)
Quarter: 2011Q2

REPORT INFORMATION
  Report Type: 
  Country: None (occurrence: None)
  Receive Date: 20110422
  Receipt Date: 20110413
  Transmission Date: 20111010
  Serious: Yes (Other)
  Sender: FDA-Public Use
  Company Number: A0892560A

PATIENT
  Age: 44 Year
  Sex: Female
  Weight: 72.9 kg

DRUGS (7)
  1. HERCEPTIN [Concomitant]
  2. HYDROMORPHONE HCL [Concomitant]
  3. BARACLUDE [Concomitant]
  4. TESSALON [Concomitant]
  5. TYKERB [Suspect]
     Indication: BREAST CANCER
     Dosage: 4TAB PER DAY
     Route: 048
     Dates: start: 20101111
  6. LORAZEPAM [Concomitant]
  7. LOVENOX [Concomitant]

REACTIONS (12)
  - CLOSTRIDIAL INFECTION [None]
  - ACNE [None]
  - WHITE BLOOD CELLS STOOL [None]
  - DIARRHOEA [None]
  - DRY SKIN [None]
  - HUNGER [None]
  - NAIL DISORDER [None]
  - HAIR TEXTURE ABNORMAL [None]
  - PROCTALGIA [None]
  - ONYCHOCLASIS [None]
  - ANORECTAL DISCOMFORT [None]
  - BACK PAIN [None]
